FAERS Safety Report 5147916-9 (Version None)
Quarter: 2006Q4

REPORT INFORMATION
  Report Type: 
  Country: None (occurrence: None)
  Receive Date: 20061110
  Receipt Date: 20061010
  Transmission Date: 20070319
  Serious: Yes (Hospitalization)
  Sender: FDA-Public Use
  Company Number: PHHO2006IT16995

PATIENT
  Age: 48 Year
  Sex: Female

DRUGS (2)
  1. RAD001 [Suspect]
     Indication: RENAL TRANSPLANT
     Route: 048
     Dates: start: 20060723, end: 20060815
  2. NEORAL [Suspect]
     Indication: RENAL TRANSPLANT
     Dosage: 250 MG DAILY DOSE
     Route: 048
     Dates: start: 20060723, end: 20060815

REACTIONS (7)
  - BLOOD CREATININE INCREASED [None]
  - COMPLICATIONS OF TRANSPLANTED KIDNEY [None]
  - DRUG TOXICITY [None]
  - KIDNEY TRANSPLANT REJECTION [None]
  - RENAL IMPAIRMENT [None]
  - RENAL TUBULAR NECROSIS [None]
  - URINE OUTPUT DECREASED [None]
